FAERS Safety Report 4523163-6 (Version None)
Quarter: 2004Q4

REPORT INFORMATION
  Report Type: 
  Country: None (occurrence: None)
  Receive Date: 20041210
  Receipt Date: 20041130
  Transmission Date: 20050328
  Serious: Yes (Death)
  Sender: FDA-Public Use
  Company Number: DE-JNJFOC-20041200419

PATIENT
  Sex: Female

DRUGS (3)
  1. REMINYL [Suspect]
     Indication: DEMENTIA ALZHEIMER'S TYPE
     Route: 049
     Dates: start: 20040309, end: 20040924
  2. AKINETON [Concomitant]
     Indication: DRUG USE FOR UNKNOWN INDICATION
     Route: 065
  3. INSULIN [Concomitant]
     Dosage: AS REQUIRED, ACCORDING TO BLOOD SUGAR
     Route: 065

REACTIONS (1)
  - PULMONARY EMBOLISM [None]
